FAERS Safety Report 7573939-6 (Version None)
Quarter: 2011Q2

REPORT INFORMATION
  Report Type: 
  Country: None (occurrence: None)
  Receive Date: 20110627
  Receipt Date: 20110624
  Transmission Date: 20111010
  Serious: Yes (Other)
  Sender: FDA-Public Use
  Company Number: CH-PFIZER INC-2011141798

PATIENT
  Age: 81 Year
  Sex: Female

DRUGS (8)
  1. VALPROIC ACID [Concomitant]
  2. SERALIN-MEPHA [Concomitant]
  3. NEXIUM [Concomitant]
  4. DIPIPERON [Concomitant]
  5. NEURONTIN [Suspect]
     Route: 048
  6. OPTIFEN [Concomitant]
  7. METOPROLOL SUCCINATE [Concomitant]
  8. RISPERDAL [Concomitant]

REACTIONS (1)
  - OESOPHAGEAL OBSTRUCTION [None]
